FAERS Safety Report 7954790-1 (Version None)
Quarter: 2011Q4

REPORT INFORMATION
  Report Type: 
  Country: None (occurrence: None)
  Receive Date: 20111202
  Receipt Date: 20111123
  Transmission Date: 20120403
  Serious: Yes (Other)
  Sender: FDA-Public Use
  Company Number: CH-NAPPMUNDI-DEU-2011-0008092

PATIENT
  Age: 85 Year
  Sex: Female
  Weight: 70 kg

DRUGS (10)
  1. PERINDOPRIL ERBUMINE [Suspect]
     Indication: PRODUCT USED FOR UNKNOWN INDICATION
     Dosage: 2.5 MG, DAILY
     Route: 048
     Dates: end: 20111013
  2. BACTRIM [Concomitant]
     Dosage: 160 MG, BID
     Dates: start: 20111007, end: 20111013
  3. ESCITALOPRAM [Concomitant]
     Dosage: 10 MG, DAILY
     Route: 048
  4. METOPROLOL SUCCINATE [Suspect]
     Indication: PRODUCT USED FOR UNKNOWN INDICATION
     Dosage: 25 MG, DAILY
     Route: 048
     Dates: end: 20111014
  5. TORSEMIDE [Suspect]
     Indication: PRODUCT USED FOR UNKNOWN INDICATION
     Dosage: 10 MG, DAILY
     Route: 048
     Dates: end: 20111013
  6. ALDACTONE [Suspect]
     Indication: PRODUCT USED FOR UNKNOWN INDICATION
     Dosage: 25 MG, DAILY
     Route: 048
     Dates: end: 20111012
  7. SEROQUEL [Concomitant]
     Dosage: 12.5 MG, BID
     Dates: start: 20111010
  8. DIGOXIN [Concomitant]
     Dosage: 0.125 MG, 5X/WEEK
     Route: 048
  9. OXYCODONE HCL [Suspect]
     Indication: PRODUCT USED FOR UNKNOWN INDICATION
     Dosage: 10 MG, SEE TEXT
     Dates: start: 20111011, end: 20111013
  10. SINTROM [Concomitant]
     Dosage: UNK
     Route: 048

REACTIONS (5)
  - CONFUSIONAL STATE [None]
  - HALLUCINATION [None]
  - ACCIDENTAL OVERDOSE [None]
  - HYPOTENSION [None]
  - RENAL FAILURE ACUTE [None]
